FAERS Safety Report 10026382 (Version 1)
Quarter: 2014Q1

REPORT INFORMATION
  Report Type: Spontaneous
  Country: US (occurrence: US)
  Receive Date: 20140321
  Receipt Date: 20140321
  Transmission Date: 20141002
  Serious: No
  Sender: FDA-Public Use
  Company Number: US-ALLERGAN-1400570US

PATIENT
  Sex: Female

DRUGS (1)
  1. LUMIGAN [Suspect]
     Indication: INTRAOCULAR PRESSURE INCREASED
     Dosage: UNK
     Dates: start: 1988, end: 1989

REACTIONS (3)
  - Depression [Unknown]
  - Eyelash thickening [Not Recovered/Not Resolved]
  - Growth of eyelashes [Not Recovered/Not Resolved]
